FAERS Safety Report 9705472 (Version 2)
Quarter: 2013Q4

REPORT INFORMATION
  Report Type: Spontaneous
  Country: DE (occurrence: DE)
  Receive Date: 20131122
  Receipt Date: 20131219
  Transmission Date: 20140711
  Serious: Yes (Life-Threatening, Hospitalization, Congenital Anomaly, Other)
  Sender: FDA-Public Use
  Company Number: DE-TEVA-444715GER

PATIENT
  Age: 1 Day
  Sex: Male

DRUGS (7)
  1. EPIRUBICIN [Suspect]
     Route: 064
  2. LAMOTRIGINE [Suspect]
     Route: 064
  3. CYCLOPHOSPHAMIDE [Suspect]
     Route: 064
  4. FOLICACID RATIOPHARM [Concomitant]
     Route: 064
  5. FILGRASTIM [Concomitant]
     Route: 064
  6. DEXAMETHASONE [Concomitant]
     Route: 064
  7. ONDANSETRON [Concomitant]
     Route: 064

REACTIONS (4)
  - Hypospadias [Not Recovered/Not Resolved]
  - Pulmonary artery stenosis congenital [Unknown]
  - Atrial septal defect [Not Recovered/Not Resolved]
  - Neonatal respiratory distress syndrome [Recovered/Resolved]
